FAERS Safety Report 17635306 (Version 2)
Quarter: 2020Q2

REPORT INFORMATION
  Report Type: Report from Study
  Country: None (occurrence: US)
  Receive Date: 20200407
  Receipt Date: 20200428
  Transmission Date: 20200713
  Serious: Yes (Other)
  Sender: FDA-Public Use
  Company Number: US-ABBVIE-20K-163-3352329-00

PATIENT
  Age: 86 Year
  Sex: Female

DRUGS (1)
  1. VENCLEXTA [Suspect]
     Active Substance: VENETOCLAX
     Indication: ACUTE MYELOID LEUKAEMIA
     Dosage: TAKES EVERY MORNING WITH FOODS
     Route: 048
     Dates: start: 20190829

REACTIONS (3)
  - Transfusion [Recovered/Resolved]
  - Transfusion [Unknown]
  - Emotional distress [Unknown]

NARRATIVE: CASE EVENT DATE: 20200331
